FAERS Safety Report 7318899-8 (Version None)
Quarter: 2011Q1

REPORT INFORMATION
  Report Type: 
  Country: None (occurrence: None)
  Receive Date: 20110228
  Receipt Date: 20110215
  Transmission Date: 20110831
  Serious: Yes (Other)
  Sender: FDA-Public Use
  Company Number: CA-ELI_LILLY_AND_COMPANY-CA201102003936

PATIENT
  Sex: Male

DRUGS (12)
  1. ZYPREXA [Suspect]
     Dosage: 2.5 MG, UNK
     Route: 048
     Dates: start: 20011117
  2. LITHIUM [Concomitant]
     Dosage: 300 MG, UNK
  3. LEVOCARB [Concomitant]
     Dosage: 100 MG, UNK
  4. PROLOPA [Concomitant]
     Dosage: 50 MG, DAILY (1/D)
     Route: 048
  5. K-DUR [Concomitant]
     Dosage: 20 MEQ, DAILY (1/D)
     Route: 048
  6. DILTIAZEM [Concomitant]
     Dosage: 360 MG, DAILY (1/D)
     Route: 048
  7. PAXIL [Concomitant]
     Dosage: 20 MG, DAILY (1/D)
     Route: 048
  8. CLONAZEPAM [Concomitant]
     Dosage: 0.5 MG, 3/D
     Route: 048
  9. BISOPROLOL FUMARATE [Concomitant]
     Dosage: 10 MG, DAILY (1/D)
     Route: 048
  10. RISPERIDONE [Concomitant]
     Dosage: 1 D/F, UNK
  11. HYZAAR [Concomitant]
     Dosage: 50 MG, DAILY (1/D)
     Route: 048
  12. ZYPREXA [Suspect]
     Dosage: 5 MG, AS NEEDED
     Dates: start: 20071129

REACTIONS (2)
  - RENAL FAILURE ACUTE [None]
  - DIABETES MELLITUS [None]
